FAERS Safety Report 13543317 (Version 1)
Quarter: 2017Q2

REPORT INFORMATION
  Report Type: Spontaneous
  Country: IT (occurrence: IT)
  Receive Date: 20170514
  Receipt Date: 20170514
  Transmission Date: 20170830
  Serious: Yes (Other)
  Sender: FDA-Public Use
  Company Number: IT-ROCHE-1933036

PATIENT
  Age: 40 Year
  Sex: Female

DRUGS (5)
  1. CLONAZEPAM. [Suspect]
     Active Substance: CLONAZEPAM
     Indication: PRODUCT USED FOR UNKNOWN INDICATION
     Route: 048
     Dates: start: 20170225, end: 20170225
  2. DEPAKIN [Suspect]
     Active Substance: VALPROATE SODIUM
     Indication: PRODUCT USED FOR UNKNOWN INDICATION
     Dosage: ^CHRONO 500 MG PROLONGED-RELEASE TABLETS^
     Route: 048
     Dates: start: 20170225, end: 20170225
  3. HALCION [Concomitant]
     Active Substance: TRIAZOLAM
     Dosage: ^250 MICROGRAM TABLETS^ 20 TABLETS
     Route: 048
  4. VENLAFAXINE [Concomitant]
     Active Substance: VENLAFAXINE HYDROCHLORIDE
     Route: 048
  5. MIRTAZAPINE. [Suspect]
     Active Substance: MIRTAZAPINE
     Indication: PRODUCT USED FOR UNKNOWN INDICATION
     Route: 048
     Dates: start: 20170225, end: 20170225

REACTIONS (5)
  - Drug use disorder [Unknown]
  - Anxiety [Recovering/Resolving]
  - Vomiting [Recovering/Resolving]
  - Dysphoria [Recovering/Resolving]
  - Toxicity to various agents [Recovering/Resolving]

NARRATIVE: CASE EVENT DATE: 20170225
